FAERS Safety Report 6546991-4 (Version None)
Quarter: 2010Q1

REPORT INFORMATION
  Report Type: 
  Country: None (occurrence: None)
  Receive Date: 20100122
  Receipt Date: 20100118
  Transmission Date: 20100710
  Serious: Yes (Hospitalization)
  Sender: FDA-Public Use
  Company Number: A0840769A

PATIENT
  Sex: Male

DRUGS (2)
  1. AMOXIL [Suspect]
     Indication: TONSILLITIS
     Dosage: 500MG TWICE PER DAY
     Route: 065
     Dates: start: 20100104, end: 20100106
  2. FOLIC ACID [Concomitant]
     Dosage: 1TAB PER DAY

REACTIONS (1)
  - PNEUMONIA [None]
